FAERS Safety Report 5507585-2 (Version None)
Quarter: 2007Q4

REPORT INFORMATION
  Report Type: 
  Country: None (occurrence: None)
  Receive Date: 20071102
  Receipt Date: 20071017
  Transmission Date: 20080405
  Serious: Yes (Life-Threatening)
  Sender: FDA-Public Use
  Company Number: S07-NLD-05216-01

PATIENT
  Age: 82 Year
  Sex: Female

DRUGS (4)
  1. MEMANTINE HCL [Suspect]
     Dosage: 5 MG QD PO
     Route: 048
  2. MEMANTINE HCL [Suspect]
     Dosage: 5 MG BID PO
     Route: 048
     Dates: start: 20070917, end: 20070919
  3. LORAZEPAM [Concomitant]
  4. CITALOPRAM HYDROBROMIDE [Concomitant]

REACTIONS (2)
  - ATRIAL FIBRILLATION [None]
  - BLOOD PRESSURE DECREASED [None]
